FAERS Safety Report 6331440-1 (Version None)
Quarter: 2009Q3

REPORT INFORMATION
  Report Type: 
  Country: None (occurrence: None)
  Receive Date: 20090827
  Receipt Date: 20090821
  Transmission Date: 20100115
  Serious: Yes (Hospitalization)
  Sender: FDA-Public Use
  Company Number: US-ABBOTT-08P-163-0455095-00

PATIENT
  Sex: Female
  Weight: 77.18 kg

DRUGS (7)
  1. HUMIRA [Suspect]
     Indication: RHEUMATOID ARTHRITIS
     Route: 058
     Dates: start: 20070801, end: 20080101
  2. HUMIRA [Suspect]
     Route: 058
     Dates: start: 20080101
  3. METHOTREXATE SODIUM [Concomitant]
     Indication: RHEUMATOID ARTHRITIS
     Route: 048
  4. LISINOPRIL [Concomitant]
     Indication: HYPERTENSION
     Dosage: 20/12.5MG EVERY MORNING
     Route: 048
  5. NORVASC [Concomitant]
     Indication: HYPERTENSION
     Route: 048
  6. XANAX [Concomitant]
     Indication: ANXIETY
     Route: 048
  7. PERCOCET [Concomitant]
     Indication: ARTHRALGIA
     Dosage: 5 MG/325 MG, 2 TABLETS FOUR TIMES A DAY
     Route: 048

REACTIONS (8)
  - DRUG DELIVERY SYSTEM MALFUNCTION [None]
  - INCORRECT DOSE ADMINISTERED [None]
  - INFLUENZA [None]
  - INJECTION SITE IRRITATION [None]
  - PNEUMONIA [None]
  - RENAL FAILURE [None]
  - SEPSIS [None]
  - URINARY TRACT INFECTION [None]
